FAERS Safety Report 8516527 (Version 2)
Quarter: 2013Q1

REPORT INFORMATION
  Report Type: Spontaneous
  Country: US (occurrence: US)
  Receive Date: 20120417
  Receipt Date: 20130104
  Transmission Date: 20140127
  Serious: No
  Sender: FDA-Public Use
  Company Number: US-ASTRAZENECA-2010SE19898

PATIENT
  Age: 55 Year
  Sex: Female

DRUGS (2)
  1. NEXIUM [Suspect]
     Route: 048
  2. PREVACID [Concomitant]

REACTIONS (8)
  - Gastrooesophageal reflux disease [Unknown]
  - Aphagia [Unknown]
  - Fibromyalgia [Unknown]
  - Pain [Unknown]
  - Gastric disorder [Unknown]
  - Malaise [Unknown]
  - Diarrhoea [Unknown]
  - Drug dose omission [Unknown]
